FAERS Safety Report 5731116-5 (Version None)
Quarter: 2008Q2

REPORT INFORMATION
  Report Type: 
  Country: None (occurrence: None)
  Receive Date: 20080505
  Receipt Date: 20080418
  Transmission Date: 20081010
  Serious: Yes (Other)
  Sender: FDA-Public Use
  Company Number: 2008BI007770

PATIENT
  Sex: Female

DRUGS (1)
  1. AVONEX [Suspect]
     Indication: MULTIPLE SCLEROSIS
     Dosage: ;IM
     Route: 030
     Dates: end: 20061001

REACTIONS (13)
  - ATROPHY [None]
  - CONVULSION [None]
  - DEPRESSION [None]
  - EPILEPSY [None]
  - EPSTEIN-BARR VIRUS INFECTION [None]
  - ERYTHEMA [None]
  - ERYTHEMA NODOSUM [None]
  - FALL [None]
  - HEPATIC ENZYME INCREASED [None]
  - MELANOCYTIC NAEVUS [None]
  - NODULE [None]
  - PRURITUS [None]
  - TREMOR [None]
